FAERS Safety Report 24651110 (Version 2)
Quarter: 2024Q4

REPORT INFORMATION
  Report Type: Spontaneous
  Country: US (occurrence: US)
  Receive Date: 20241122
  Receipt Date: 20241130
  Transmission Date: 20250115
  Serious: Yes (Hospitalization, Other)
  Sender: ABBVIE
  Company Number: US-ABBVIE-6013978

PATIENT
  Age: 62 Year
  Sex: Male

DRUGS (2)
  1. VIIBRYD [Suspect]
     Active Substance: VILAZODONE HYDROCHLORIDE
     Indication: Mental disorder
     Dosage: STRENGTH: 20 MG, 7 TABLETS
     Route: 048
     Dates: start: 2019, end: 2019
  2. VIIBRYD [Suspect]
     Active Substance: VILAZODONE HYDROCHLORIDE
     Indication: Mental disorder
     Dosage: STRENGTH: 40 MILLIGRAM, 9 TABLETS
     Route: 048

REACTIONS (6)
  - Hospice care [Unknown]
  - Hypoaesthesia [Not Recovered/Not Resolved]
  - Seizure [Recovered/Resolved]
  - Burning sensation [Not Recovered/Not Resolved]
  - Blindness transient [Recovered/Resolved]
  - Impaired quality of life [Unknown]

NARRATIVE: CASE EVENT DATE: 20190101
